FAERS Safety Report 14952166 (Version 2)
Quarter: 2018Q2

REPORT INFORMATION
  Report Type: Spontaneous
  Country: FR (occurrence: FR)
  Receive Date: 20180530
  Receipt Date: 20180615
  Transmission Date: 20180711
  Serious: Yes (Disabling)
  Sender: FDA-Public Use
  Company Number: FR-PFIZER INC-2018214575

PATIENT
  Age: 41 Year
  Sex: Female
  Weight: 90 kg

DRUGS (7)
  1. TAMOXIFENE CITRATE [Suspect]
     Active Substance: TAMOXIFEN CITRATE
     Indication: BREAST CANCER
     Dosage: 20 MG, 1X/DAY
     Route: 048
     Dates: start: 20150504
  2. PACLITAXEL. [Suspect]
     Active Substance: PACLITAXEL
     Indication: BREAST CANCER
     Dosage: 150 MG, 1X/WEEK
     Route: 042
     Dates: start: 20180104, end: 20180411
  3. PERJETA [Suspect]
     Active Substance: PERTUZUMAB
     Indication: BREAST CANCER
     Dosage: 840 MG, CYLIC
     Route: 042
     Dates: start: 20180104
  4. ACTISKENAN [Suspect]
     Active Substance: MORPHINE SULFATE
     Dosage: 10 MG
     Route: 048
     Dates: start: 20180104
  5. HERCEPTIN [Suspect]
     Active Substance: TRASTUZUMAB
     Indication: BREAST CANCER
     Dosage: 670 MG, CYCLIC
     Route: 042
     Dates: start: 20180104
  6. DUROGESIC [Suspect]
     Active Substance: FENTANYL
     Dosage: 1 DF, EVERY 72H
     Route: 023
     Dates: start: 20180104
  7. XGEVA [Suspect]
     Active Substance: DENOSUMAB
     Indication: METASTASES TO BONE
     Dosage: 120 MG, 1X/MONTH
     Route: 042
     Dates: start: 20171226

REACTIONS (1)
  - Corneal disorder [Not Recovered/Not Resolved]

NARRATIVE: CASE EVENT DATE: 20180305
